FAERS Safety Report 8937988 (Version 1)
Quarter: 2012Q4

REPORT INFORMATION
  Report Type: Spontaneous
  Country: US (occurrence: None)
  Receive Date: 20121128
  Receipt Date: 20121128
  Transmission Date: 20130627
  Serious: No
  Sender: FDA-Public Use
  Company Number: None

PATIENT
  Sex: Male

DRUGS (1)
  1. METADATE CD [Suspect]
     Indication: ADHD
     Dosage: one does in the AM
     Dates: start: 20120906, end: 20121109

REACTIONS (1)
  - Drug ineffective [None]
